FAERS Safety Report 15734480 (Version 1)
Quarter: 2018Q4

REPORT INFORMATION
  Report Type: Other
  Country: CA (occurrence: CA)
  Receive Date: 20181218
  Receipt Date: 20181218
  Transmission Date: 20190205
  Serious: Yes (Life-Threatening, Hospitalization, Other)
  Sender: FDA-Public Use
  Company Number: CA-APOTEX-2018AP027367

PATIENT
  Age: 18 Year
  Sex: Female

DRUGS (2)
  1. PAROXETINE. [Suspect]
     Active Substance: PAROXETINE
     Indication: PRODUCT USED FOR UNKNOWN INDICATION
     Dosage: 20 MG, QD
     Route: 065
  2. APTIOM [Suspect]
     Active Substance: ESLICARBAZEPINE ACETATE
     Indication: PRODUCT USED FOR UNKNOWN INDICATION
     Dosage: 5600 MG, SINGLE
     Route: 048

REACTIONS (18)
  - Posturing [Recovering/Resolving]
  - Hyperglycaemia [Recovering/Resolving]
  - Hypotonia [Recovering/Resolving]
  - Mydriasis [Recovering/Resolving]
  - Depressed level of consciousness [Recovering/Resolving]
  - Tachycardia [Recovering/Resolving]
  - Hypoxia [Recovering/Resolving]
  - Muscle rigidity [Recovering/Resolving]
  - Blood pressure abnormal [Recovering/Resolving]
  - Ventricular tachycardia [Recovering/Resolving]
  - Restlessness [Recovering/Resolving]
  - Confusional state [Recovering/Resolving]
  - Cardiac arrest [Recovering/Resolving]
  - Generalised tonic-clonic seizure [Recovering/Resolving]
  - Dysarthria [Recovering/Resolving]
  - Intentional overdose [Recovering/Resolving]
  - Chills [Recovering/Resolving]
  - Sinus tachycardia [Recovering/Resolving]
